FAERS Safety Report 9056635 (Version 1)
Quarter: 2013Q1

REPORT INFORMATION
  Report Type: Spontaneous
  Country: IT (occurrence: IT)
  Receive Date: 20130204
  Receipt Date: 20130204
  Transmission Date: 20140127
  Serious: Yes (Hospitalization)
  Sender: FDA-Public Use
  Company Number: PHHY2013IT009321

PATIENT
  Age: 37 Year
  Sex: Male

DRUGS (9)
  1. LORAZEPAM [Suspect]
     Indication: INTENTIONAL SELF-INJURY
     Dosage: 10 MG, UNK
     Route: 048
     Dates: start: 20130123, end: 20130123
  2. LORAZEPAM [Suspect]
     Indication: DRUG ABUSE
  3. SERENASE [Concomitant]
     Route: 048
  4. IMOVANE [Concomitant]
     Route: 048
  5. ANTABUS DISPERGETT [Concomitant]
     Route: 048
  6. DEPAKIN [Concomitant]
  7. ENTUMIN [Concomitant]
     Route: 048
  8. LYRICA [Concomitant]
  9. CITALOPRAM [Concomitant]
     Route: 048

REACTIONS (4)
  - Hypotension [Recovering/Resolving]
  - Intentional self-injury [Recovering/Resolving]
  - Tachycardia [Recovering/Resolving]
  - Sopor [Recovering/Resolving]
